FAERS Safety Report 25995383 (Version 1)
Quarter: 2025Q4

REPORT INFORMATION
  Report Type: Spontaneous
  Country: US (occurrence: US)
  Receive Date: 20251104
  Receipt Date: 20251104
  Transmission Date: 20260117
  Serious: No
  Sender: AMGEN
  Company Number: US-AMGEN-USASP2025216111

PATIENT
  Sex: Male

DRUGS (3)
  1. KRYSTEXXA [Suspect]
     Active Substance: PEGLOTICASE
     Indication: Gout
     Dosage: 8 MILLIGRAM, Q2WK
     Route: 040
     Dates: start: 2024
  2. KRYSTEXXA [Suspect]
     Active Substance: PEGLOTICASE
     Dosage: 8 MILLIGRAM, Q2WK (LAST INFUSION)
     Route: 040
     Dates: start: 202510
  3. DEXAMETHASONE [Suspect]
     Active Substance: DEXAMETHASONE
     Indication: Product used for unknown indication
     Dosage: 20 MILLIGRAM
     Route: 065
     Dates: end: 2025

REACTIONS (1)
  - Nausea [Unknown]

NARRATIVE: CASE EVENT DATE: 20251001
